FAERS Safety Report 14576416 (Version 1)
Quarter: 2018Q1

REPORT INFORMATION
  Report Type: Spontaneous
  Country: JP (occurrence: JP)
  Receive Date: 20180227
  Receipt Date: 20180227
  Transmission Date: 20180509
  Serious: Yes (Other)
  Sender: FDA-Public Use
  Company Number: JP-BAYER-2018-031637

PATIENT
  Age: 32 Year
  Sex: Female

DRUGS (5)
  1. OXYTOCIN. [Concomitant]
     Active Substance: OXYTOCIN
     Indication: LABOUR INDUCTION
     Dosage: 20 MU/MIN
     Route: 042
  2. PREDNISOLONE. [Concomitant]
     Active Substance: PREDNISOLONE
     Dosage: DAILY DOSE 30 MG
     Route: 048
  3. PREDNISOLONE. [Concomitant]
     Active Substance: PREDNISOLONE
     Dosage: DAILY DOSE 12.5 MG
     Route: 048
  4. PREDNISOLONE. [Concomitant]
     Active Substance: PREDNISOLONE
     Dosage: DAILY DOSE 40 MG
     Route: 048
  5. BAYASPIRIN 100 MG [Suspect]
     Active Substance: ASPIRIN
     Dosage: DAILY DOSE 100 MG
     Route: 048

REACTIONS (4)
  - Caesarean section [None]
  - Pre-eclampsia [None]
  - Exposure during pregnancy [None]
  - Failed induction of labour [None]
